FAERS Safety Report 22743280 (Version 7)
Quarter: 2023Q4

REPORT INFORMATION
  Report Type: Spontaneous
  Country: DE (occurrence: DE)
  Receive Date: 20230724
  Receipt Date: 20231117
  Transmission Date: 20240109
  Serious: Yes (Hospitalization, Other)
  Sender: FDA-Public Use
  Company Number: DE-MYLANLABS-2023M1077240

PATIENT
  Age: 23 Month
  Sex: Male
  Weight: 11 kg

DRUGS (4)
  1. EPINEPHRINE HYDROCHLORIDE [Suspect]
     Active Substance: EPINEPHRINE HYDROCHLORIDE
     Indication: Hypersensitivity
     Dosage: 150 MILLIGRAM, 1 TOTAL
     Route: 030
     Dates: start: 20230717
  2. EPINEPHRINE HYDROCHLORIDE [Suspect]
     Active Substance: EPINEPHRINE HYDROCHLORIDE
     Indication: Anaphylactic reaction
  3. PREDNISONE [Concomitant]
     Active Substance: PREDNISONE
     Indication: Hypersensitivity
     Dosage: 100 MILLIGRAM, QD
     Route: 054
     Dates: start: 20230717
  4. CETIRIZINE [Concomitant]
     Active Substance: CETIRIZINE HYDROCHLORIDE
     Indication: Hypersensitivity
     Dosage: 1 MG/ML, QD
     Route: 048
     Dates: start: 20230717

REACTIONS (5)
  - Injury associated with device [Unknown]
  - Needle issue [Recovered/Resolved with Sequelae]
  - Injection site scar [Not Recovered/Not Resolved]
  - Stress [Unknown]
  - Fear [Unknown]

NARRATIVE: CASE EVENT DATE: 20230717
